FAERS Safety Report 26111831 (Version 1)
Quarter: 2025Q4

REPORT INFORMATION
  Report Type: Spontaneous
  Country: US (occurrence: None)
  Receive Date: 20251201
  Receipt Date: 20251201
  Transmission Date: 20260118
  Serious: Yes (Hospitalization)
  Sender: FDA-CTU
  Company Number: None

PATIENT
  Age: 7 Year
  Sex: Male
  Weight: 25.8 kg

DRUGS (1)
  1. CALASPARGASE PEGOL [Suspect]
     Active Substance: CALASPARGASE PEGOL
     Indication: B-cell type acute leukaemia
     Dosage: OTHER FREQUENCY : ONCE;
     Route: 042
     Dates: start: 20250806

REACTIONS (1)
  - Superior sagittal sinus thrombosis [None]

NARRATIVE: CASE EVENT DATE: 20251009
